FAERS Safety Report 10086126 (Version 1)
Quarter: 2014Q2

REPORT INFORMATION
  Report Type: Spontaneous
  Country: None (occurrence: None)
  Receive Date: 20140415
  Receipt Date: 20140415
  Transmission Date: 20141212
  Serious: Yes (Hospitalization, Other)
  Sender: FDA-Public Use
  Company Number: 08-AUR-04805

PATIENT
  Age: 75 Year
  Sex: Female

DRUGS (7)
  1. GABAPENTIN [Suspect]
     Indication: ANALGESIC THERAPY
  2. AMLODIPINE (AMLODIPINE) [Concomitant]
  3. DICLOFENAC (DICLOFENAC) [Concomitant]
  4. TRAMADOL (TRAMADOL) [Concomitant]
  5. DIHYDROCODEINE (DIHYDROCODEINE) [Concomitant]
  6. FUROSEMIDE (FUROSEMIDE) [Concomitant]
  7. IRBESARTAN (IRBESARTAN) [Concomitant]

REACTIONS (14)
  - Fall [None]
  - Somnolence [None]
  - Activities of daily living impaired [None]
  - Anaemia [None]
  - Renal impairment [None]
  - Blood alkaline phosphatase increased [None]
  - Gamma-glutamyltransferase increased [None]
  - Biliary dilatation [None]
  - Renal cyst [None]
  - General physical health deterioration [None]
  - Toxicity to various agents [None]
  - Continuous haemodiafiltration [None]
  - Cognitive disorder [None]
  - Cardiovascular disorder [None]
